FAERS Safety Report 21719563 (Version 10)
Quarter: 2023Q1

REPORT INFORMATION
  Report Type: Report from Study
  Country: CA (occurrence: CA)
  Receive Date: 20221213
  Receipt Date: 20230213
  Transmission Date: 20230417
  Serious: Yes (Other)
  Sender: FDA-Public Use
  Company Number: CA-JNJFOC-20221038604

PATIENT
  Age: 59 Year
  Sex: Female
  Weight: 81 kg

DRUGS (3)
  1. REMICADE [Suspect]
     Active Substance: INFLIXIMAB
     Indication: Crohn^s disease
     Dosage: PATIENT LAST INFUSION ON 11-JUL-2022.?ON 02-FEB-2023, THE PATIENT RECEIVED 49TH INFUSION WITH DOSE O
     Route: 042
     Dates: start: 20160804
  2. ASTRAZENECA COVID-19 VACCINE [Concomitant]
     Active Substance: AZD-1222
     Indication: COVID-19 prophylaxis
     Dosage: 3 ASTRAZENECA
     Route: 065
  3. PFIZER-BIONTECH COVID-19 VACCINE [Concomitant]
     Active Substance: TOZINAMERAN
     Indication: COVID-19 prophylaxis
     Dosage: 1 PFIZER
     Route: 065

REACTIONS (17)
  - Pneumonia [Not Recovered/Not Resolved]
  - Diabetes mellitus [Unknown]
  - Infection [Unknown]
  - COVID-19 [Not Recovered/Not Resolved]
  - Fungal infection [Unknown]
  - Fall [Unknown]
  - Aphonia [Unknown]
  - Malaise [Unknown]
  - Pollakiuria [Unknown]
  - Abnormal faeces [Unknown]
  - Oxygen saturation decreased [Unknown]
  - Vomiting [Unknown]
  - Abdominal discomfort [Unknown]
  - Treatment noncompliance [Unknown]
  - Abdominal pain [Unknown]
  - Diarrhoea [Unknown]
  - Product dose omission issue [Unknown]

NARRATIVE: CASE EVENT DATE: 20221001
